FAERS Safety Report 4591005-9 (Version None)
Quarter: 2005Q1

REPORT INFORMATION
  Report Type: 
  Country: None (occurrence: None)
  Receive Date: 20050218
  Receipt Date: 20050204
  Transmission Date: 20050727
  Serious: Yes (Disabling, Other)
  Sender: FDA-Public Use
  Company Number: DEU-2005-0001262

PATIENT
  Age: 85 Year
  Sex: Female
  Weight: 57 kg

DRUGS (7)
  1. OXYCODONE HCL [Suspect]
     Indication: BACK PAIN
     Dosage: 10 MG,BID,ORAL
     Route: 048
     Dates: start: 20050112, end: 20050114
  2. PARLODEL [Suspect]
     Indication: PARKINSON'S DISEASE
     Dosage: 15 MG,DAILY,ORAL
     Route: 048
  3. CITALOPRAM HYDROBROMIDE [Suspect]
     Indication: DRUG USE FOR UNKNOWN INDICATION
     Dosage: 10 MG,DAILY,ORAL
     Route: 048
  4. MADOPAR QUICK (BENSERAZIDE HYDROCHLORIDE, LEVODOPA) [Concomitant]
  5. EFFORTIL (ETILEFRINE HYDROCHLORIDE) [Concomitant]
  6. MAGNESIUM [Concomitant]
  7. TRANSIPEG (MACROGOL) [Concomitant]

REACTIONS (4)
  - DRUG INTERACTION [None]
  - DYSSTASIA [None]
  - FALL [None]
  - MUSCULOSKELETAL STIFFNESS [None]
